FAERS Safety Report 7359086-7 (Version None)
Quarter: 2011Q1

REPORT INFORMATION
  Report Type: 
  Country: None (occurrence: None)
  Receive Date: 20110317
  Receipt Date: 20110228
  Transmission Date: 20110831
  Serious: Yes (Hospitalization, Other)
  Sender: FDA-Public Use
  Company Number: US-BAYER-201021850NA

PATIENT
  Sex: Female

DRUGS (4)
  1. YAZ [Suspect]
     Route: 048
     Dates: start: 20070301, end: 20070401
  2. YASMIN [Suspect]
     Indication: PRODUCT USED FOR UNKNOWN INDICATION
     Route: 048
     Dates: start: 20050801, end: 20051201
  3. YASMIN [Suspect]
     Route: 048
     Dates: start: 20070301, end: 20070401
  4. YAZ [Suspect]
     Indication: PRODUCT USED FOR UNKNOWN INDICATION
     Route: 048
     Dates: start: 20050801, end: 20051201

REACTIONS (4)
  - DEEP VEIN THROMBOSIS [None]
  - CHOLECYSTECTOMY [None]
  - CHOLELITHIASIS [None]
  - CHOLECYSTITIS CHRONIC [None]
